FAERS Safety Report 14441931 (Version 1)
Quarter: 2018Q1

REPORT INFORMATION
  Report Type: Spontaneous
  Country: US (occurrence: US)
  Receive Date: 20180125
  Receipt Date: 20180125
  Transmission Date: 20180509
  Serious: Yes (Hospitalization)
  Sender: FDA-Public Use
  Company Number: US-TAKEDA-2018TUS001601

PATIENT
  Age: 61 Year
  Sex: Male

DRUGS (1)
  1. ENTYVIO [Suspect]
     Active Substance: VEDOLIZUMAB
     Indication: CROHN^S DISEASE
     Dosage: 300 MG, UNK
     Route: 042
     Dates: start: 2017

REACTIONS (7)
  - Dyspnoea [Unknown]
  - Pneumonia [Unknown]
  - Wheezing [Unknown]
  - Cough [Unknown]
  - Bronchitis [Unknown]
  - Oxygen saturation abnormal [Recovered/Resolved]
  - Crohn^s disease [Unknown]

NARRATIVE: CASE EVENT DATE: 2017
